FAERS Safety Report 19000950 (Version 1)
Quarter: 2021Q1

REPORT INFORMATION
  Report Type: Report from Study
  Country: None (occurrence: US)
  Receive Date: 20210311
  Receipt Date: 20210311
  Transmission Date: 20210420
  Serious: Yes (Other)
  Sender: FDA-Public Use
  Company Number: US-ABBVIE-21K-163-3719928-00

PATIENT
  Sex: Female

DRUGS (1)
  1. RINVOQ [Suspect]
     Active Substance: UPADACITINIB
     Indication: RHEUMATOID ARTHRITIS
     Dosage: ER
     Route: 048
     Dates: start: 20201015

REACTIONS (5)
  - Somnolence [Not Recovered/Not Resolved]
  - Epilepsy [Unknown]
  - Somnambulism [Not Recovered/Not Resolved]
  - Rheumatoid arthritis [Unknown]
  - Finger deformity [Unknown]
